FAERS Safety Report 4587298-4 (Version None)
Quarter: 2005Q1

REPORT INFORMATION
  Report Type: 
  Country: None (occurrence: None)
  Receive Date: 20050215
  Receipt Date: 20050203
  Transmission Date: 20050727
  Serious: Yes (Hospitalization)
  Sender: FDA-Public Use
  Company Number: EMR64300001-11

PATIENT
  Age: 72 Year
  Sex: Male

DRUGS (7)
  1. NIASPAN [Suspect]
     Indication: DYSLIPIDAEMIA
     Dosage: 2000 MG QD PO
     Route: 048
     Dates: start: 20040728
  2. NIASPAN [Suspect]
     Indication: HIGH DENSITY LIPOPROTEIN DECREASED
     Dosage: 2000 MG QD PO
     Route: 048
     Dates: start: 20040728
  3. ACETYLSALICYLIC ACID [Concomitant]
  4. ALLOPURINOL [Concomitant]
  5. HYDROCHLOROTHIAZIDE, RAMIPRIL [Concomitant]
  6. ATORVASTATIN CALCIUM [Concomitant]
  7. METOPROLOL SUCCINATE [Concomitant]

REACTIONS (2)
  - ABDOMINAL PAIN [None]
  - BLOOD BILIRUBIN INCREASED [None]
